FAERS Safety Report 7823436-5 (Version None)
Quarter: 2011Q4

REPORT INFORMATION
  Report Type: 
  Country: None (occurrence: None)
  Receive Date: 20111019
  Receipt Date: 20111012
  Transmission Date: 20120403
  Serious: Yes (Death, Other)
  Sender: FDA-Public Use
  Company Number: US-AMGEN-USASP2011052950

PATIENT
  Sex: Male

DRUGS (2)
  1. NPLATE [Suspect]
     Indication: AUTOIMMUNE THROMBOCYTOPENIA
     Dates: start: 20081022
  2. IMMUNOGLOBULINS [Concomitant]
     Indication: AUTOIMMUNE THROMBOCYTOPENIA

REACTIONS (2)
  - DEATH [None]
  - DEMENTIA ALZHEIMER'S TYPE [None]
